FAERS Safety Report 13478308 (Version 1)
Quarter: 2017Q2

REPORT INFORMATION
  Report Type: Spontaneous
  Country: US (occurrence: US)
  Receive Date: 20170425
  Receipt Date: 20170425
  Transmission Date: 20170830
  Serious: No
  Sender: FDA-Public Use
  Company Number: US-MYLANLABS-2016M1024971

PATIENT
  Sex: Female

DRUGS (1)
  1. BUSPIRONE HYDROCHLORIDE TABLETS, USP [Suspect]
     Active Substance: BUSPIRONE HYDROCHLORIDE
     Dosage: UNK

REACTIONS (2)
  - Abdominal pain upper [Recovered/Resolved]
  - Reaction to drug excipients [Recovered/Resolved]

NARRATIVE: CASE EVENT DATE: 20160614
